FAERS Safety Report 10476935 (Version 1)
Quarter: 2014Q3

REPORT INFORMATION
  Report Type: Spontaneous
  Country: CA (occurrence: CA)
  Receive Date: 20140926
  Receipt Date: 20140926
  Transmission Date: 20150326
  Serious: Yes (Death)
  Sender: FDA-Public Use
  Company Number: CA-AMGEN-CANSP2014073800

PATIENT
  Age: 63 Year
  Sex: Male

DRUGS (1)
  1. XGEVA [Suspect]
     Active Substance: DENOSUMAB
     Indication: PROSTATE CANCER
     Dosage: 120 MG, UNK
     Route: 065
     Dates: start: 20140804, end: 20140904

REACTIONS (1)
  - Death [Fatal]

NARRATIVE: CASE EVENT DATE: 20140905
